FAERS Safety Report 25611044 (Version 2)
Quarter: 2025Q3

REPORT INFORMATION
  Report Type: Spontaneous
  Country: EU (occurrence: EU)
  Receive Date: 20250728
  Receipt Date: 20250807
  Transmission Date: 20251020
  Serious: Yes (Hospitalization, Other)
  Sender: BRISTOL-MYERS SQUIBB COMPANY
  Company Number: EU-BRISTOL-MYERS SQUIBB COMPANY-2025-103588

PATIENT
  Age: 83 Year
  Sex: Male

DRUGS (3)
  1. CAMZYOS [Suspect]
     Active Substance: MAVACAMTEN
     Indication: Hypertrophic cardiomyopathy
     Dates: start: 20250310
  2. CAMZYOS [Suspect]
     Active Substance: MAVACAMTEN
     Dates: end: 20250627
  3. CAMZYOS [Suspect]
     Active Substance: MAVACAMTEN
     Dates: start: 20250714

REACTIONS (3)
  - Pulmonary hypertension [Recovering/Resolving]
  - Respiratory failure [Not Recovered/Not Resolved]
  - Somnolence [Unknown]

NARRATIVE: CASE EVENT DATE: 20250721
